FAERS Safety Report 20004149 (Version 1)
Quarter: 2021Q4

REPORT INFORMATION
  Report Type: Spontaneous
  Country: FR (occurrence: FR)
  Receive Date: 20211027
  Receipt Date: 20211027
  Transmission Date: 20220303
  Serious: Yes (Hospitalization, Disabling)
  Sender: FDA-Public Use
  Company Number: None

PATIENT
  Age: 49 Year
  Sex: Male
  Weight: 112 kg

DRUGS (11)
  1. ACEBUTOLOL [Suspect]
     Active Substance: ACEBUTOLOL
     Indication: Angina pectoris
     Dosage: 200 MILLIGRAM, QD
     Route: 048
     Dates: end: 20210626
  2. ASPIRIN [Suspect]
     Active Substance: ASPIRIN
     Indication: Arteriosclerosis coronary artery
     Dosage: 75 MILLIGRAM, QD
     Route: 048
  3. PRASUGREL [Suspect]
     Active Substance: PRASUGREL
     Indication: Arteriosclerosis coronary artery
     Dosage: 10 MILLIGRAM, QD
     Route: 048
  4. COVERAM [Suspect]
     Active Substance: AMLODIPINE\PERINDOPRIL
     Indication: Hypertension
     Dosage: 1 DOSAGE FORM, QD (IN THE MORNING)
     Route: 048
     Dates: start: 202103, end: 20210616
  5. COMIRNATY [Suspect]
     Active Substance: TOZINAMERAN
     Indication: COVID-19 immunisation
     Dosage: 1 DOSAGE FORM, TOTAL
     Route: 030
     Dates: start: 20210617, end: 20210617
  6. EZETIMIBE [Concomitant]
     Active Substance: EZETIMIBE
     Dosage: UNK
  7. ZOPICLONE [Concomitant]
     Active Substance: ZOPICLONE
     Dosage: UNK
  8. ATORVASTATIN [Concomitant]
     Active Substance: ATORVASTATIN
     Dosage: UNK
  9. COLCHICINE [Concomitant]
     Active Substance: COLCHICINE
     Dosage: UNK
  10. PANTOPRAZOLE SODIUM [Concomitant]
     Active Substance: PANTOPRAZOLE SODIUM
     Indication: Prophylaxis against gastrointestinal ulcer
     Dosage: 20 MILLIGRAM, QD
     Route: 048
  11. PRAZEPAM [Concomitant]
     Active Substance: PRAZEPAM
     Dosage: UNK

REACTIONS (2)
  - Basilar artery thrombosis [Recovered/Resolved with Sequelae]
  - Brain stem ischaemia [Not Recovered/Not Resolved]

NARRATIVE: CASE EVENT DATE: 20210624
